FAERS Safety Report 6014620-4 (Version None)
Quarter: 2008Q4

REPORT INFORMATION
  Report Type: 
  Country: None (occurrence: None)
  Receive Date: 20081219
  Receipt Date: 20080924
  Transmission Date: 20090506
  Serious: No
  Sender: FDA-Public Use
  Company Number: A0749019A

PATIENT
  Age: 88 Year
  Sex: Male

DRUGS (7)
  1. AVODART [Suspect]
     Indication: BENIGN PROSTATIC HYPERPLASIA
     Dosage: .5MG PER DAY
     Route: 048
     Dates: start: 20080913
  2. FLOMAX [Suspect]
     Dosage: 4MG PER DAY
     Route: 048
     Dates: start: 20070801
  3. SYNTHROID [Concomitant]
  4. CENTRUM [Concomitant]
  5. ASPIRIN [Concomitant]
  6. TRICOR [Concomitant]
  7. CALTRATE PLUS D [Concomitant]

REACTIONS (2)
  - INSOMNIA [None]
  - NOCTURIA [None]
